FAERS Safety Report 8023881-1 (Version None)
Quarter: 2012Q1

REPORT INFORMATION
  Report Type: 
  Country: None (occurrence: None)
  Receive Date: 20120105
  Receipt Date: 20120102
  Transmission Date: 20120608
  Serious: No
  Sender: FDA-Public Use
  Company Number: US-PFIZER INC-2012000421

PATIENT
  Sex: Male
  Weight: 68.027 kg

DRUGS (2)
  1. LORATADINE AND PSEUDOEPHEDRINE SULFATE [Suspect]
     Indication: NASOPHARYNGITIS
     Dosage: UNK
     Dates: start: 20120102
  2. LORATADINE AND PSEUDOEPHEDRINE SULFATE [Suspect]
     Indication: SINUS DISORDER

REACTIONS (4)
  - ABDOMINAL PAIN UPPER [None]
  - HEADACHE [None]
  - FATIGUE [None]
  - CHILLS [None]
